FAERS Safety Report 22347594 (Version 1)
Quarter: 2023Q2

REPORT INFORMATION
  Report Type: Other
  Country: GB (occurrence: GB)
  Receive Date: 20230522
  Receipt Date: 20230522
  Transmission Date: 20230721
  Serious: Yes (Other)
  Sender: FDA-Public Use
  Company Number: GB-GLENMARK PHARMACEUTICALS-2023GMK081907

PATIENT

DRUGS (3)
  1. GABAPENTIN [Suspect]
     Active Substance: GABAPENTIN
     Indication: Neuralgia
     Dosage: UNK, (SHOULD WORK UP TO 1 TABLET 3 TIMES A DAY BUT RASH OCCURRED ON 2 TABLETS A DAY)
     Route: 065
     Dates: start: 20230420
  2. LERCANIDIPINE [Concomitant]
     Active Substance: LERCANIDIPINE
     Indication: Neuralgia
     Dosage: UNK
     Route: 065
     Dates: start: 20230420
  3. LERCANIDIPINE [Concomitant]
     Active Substance: LERCANIDIPINE
     Indication: Intervertebral disc disorder

REACTIONS (4)
  - Chest discomfort [Unknown]
  - Erythema [Unknown]
  - Rash [Not Recovered/Not Resolved]
  - Pruritus [Unknown]

NARRATIVE: CASE EVENT DATE: 20230504
